FAERS Safety Report 8798665 (Version 1)
Quarter: 2012Q4

REPORT INFORMATION
  Report Type: 
  Country: GB (occurrence: GB)
  Receive Date: 20120920
  Receipt Date: 20120920
  Transmission Date: 20130627
  Serious: Yes (Other)
  Sender: FDA-Public Use
  Company Number: GB-PFIZER INC-2012227856

PATIENT
  Age: 64 Year
  Sex: Male

DRUGS (6)
  1. PHENYTOIN [Suspect]
     Indication: EPILEPSY
     Dosage: UNK
  2. LAMICTAL [Suspect]
     Indication: EPILEPSY
     Dosage: 25 mg, 2x/day
     Route: 048
     Dates: start: 20120512
  3. LAMICTAL [Suspect]
     Dosage: 50 mg, 2x/day
     Dates: start: 20120526
  4. PHENOBARBITAL [Suspect]
     Indication: EPILEPSY
  5. OMEPRAZOLE [Concomitant]
  6. ADCAL [Concomitant]

REACTIONS (10)
  - Vitreous detachment [Recovering/Resolving]
  - Dry mouth [Recovering/Resolving]
  - Fatigue [Recovering/Resolving]
  - Headache [Recovering/Resolving]
  - Diplopia [Recovering/Resolving]
  - Vision blurred [Recovering/Resolving]
  - Lacrimation increased [Recovering/Resolving]
  - Eyelid oedema [Recovering/Resolving]
  - Visual impairment [Recovering/Resolving]
  - Photopsia [Recovering/Resolving]
